FAERS Safety Report 9379175 (Version 2)
Quarter: 2014Q1

REPORT INFORMATION
  Report Type: Report from Study
  Country: DZ (occurrence: DZ)
  Receive Date: 20130702
  Receipt Date: 20140120
  Transmission Date: 20141002
  Serious: Yes (Other)
  Sender: FDA-Public Use
  Company Number: DZ-ROCHE-740813

PATIENT
  Age: 51 Year
  Sex: Female

DRUGS (6)
  1. TRASTUZUMAB [Suspect]
     Indication: BREAST CANCER
     Dosage: FREQUENCY: PER CURE
     Route: 042
     Dates: start: 20101104, end: 20101107
  2. TRASTUZUMAB [Suspect]
     Route: 065
     Dates: start: 20101129
  3. TAXOTERE [Suspect]
     Indication: BREAST CANCER
     Route: 065
     Dates: start: 20100419, end: 20100913
  4. DOXORUBICINE [Suspect]
     Indication: BREAST CANCER
     Route: 065
     Dates: start: 20100419, end: 20100913
  5. DIGOXINE [Concomitant]
     Route: 065
     Dates: start: 200809, end: 201010
  6. SINTROM [Concomitant]
     Route: 065
     Dates: start: 200809

REACTIONS (5)
  - Dyspnoea [Recovered/Resolved]
  - Ejection fraction decreased [Recovered/Resolved]
  - Dilatation ventricular [Recovered/Resolved]
  - Mitral valve incompetence [Recovered/Resolved]
  - Pulmonary oedema [Recovered/Resolved]
